FAERS Safety Report 11902637 (Version 1)
Quarter: 2016Q1

REPORT INFORMATION
  Report Type: Report from Study
  Country: US (occurrence: US)
  Receive Date: 20160108
  Receipt Date: 20160108
  Transmission Date: 20160526
  Serious: No
  Sender: FDA-Public Use
  Company Number: US-ABBVIE-15P-163-1503821-00

PATIENT
  Age: 62 Year
  Sex: Male

DRUGS (1)
  1. VIEKIRA PAK [Suspect]
     Active Substance: DASABUVIR\OMBITASVIR\PARITAPREVIR\RITONAVIR
     Indication: HEPATITIS C
     Dosage: 2 PINK TABLETS WITH 1 BEIGE IN AM: 1 BEIGE IN PM
     Route: 048
     Dates: start: 20151016

REACTIONS (3)
  - Decreased interest [Unknown]
  - Depressed mood [Unknown]
  - Depression [Unknown]

NARRATIVE: CASE EVENT DATE: 20151017
